FAERS Safety Report 9078778 (Version 2)
Quarter: 2013Q2

REPORT INFORMATION
  Report Type: Report from Study
  Country: US (occurrence: US)
  Receive Date: 20130130
  Receipt Date: 20130510
  Transmission Date: 20140414
  Serious: Yes (Other)
  Sender: FDA-Public Use
  Company Number: US-ABBOTT-12P-163-0974147-00

PATIENT
  Age: 24 Year
  Sex: Female
  Weight: 59.02 kg

DRUGS (2)
  1. HUMIRA [Suspect]
     Indication: CROHN^S DISEASE
     Dates: start: 2009
  2. PRENATAL VITAMINS [Concomitant]
     Indication: PRODUCT USED FOR UNKNOWN INDICATION

REACTIONS (15)
  - Scar [Unknown]
  - Crohn^s disease [Recovering/Resolving]
  - Malaise [Recovering/Resolving]
  - Anorectal discomfort [Recovering/Resolving]
  - Crohn^s disease [Recovered/Resolved]
  - Fatigue [Not Recovered/Not Resolved]
  - Asthenia [Not Recovered/Not Resolved]
  - Abdominal pain [Recovered/Resolved]
  - Fistula [Unknown]
  - Red blood cell count increased [Unknown]
  - Back pain [Recovered/Resolved]
  - Premature labour [Recovered/Resolved]
  - White blood cell count increased [Unknown]
  - Incision site pain [Recovering/Resolving]
  - Fistula [Unknown]
